FAERS Safety Report 11012217 (Version 1)
Quarter: 2015Q2

REPORT INFORMATION
  Report Type: Spontaneous
  Country: US (occurrence: None)
  Receive Date: 20150410
  Receipt Date: 20150410
  Transmission Date: 20150821
  Serious: Yes (Death)
  Sender: FDA-Public Use
  Company Number: None

PATIENT
  Age: 16 Year
  Sex: Male
  Weight: 54.88 kg

DRUGS (15)
  1. ONCASPAR [Suspect]
     Active Substance: PEGASPARGASE
     Dates: start: 20150323
  2. DIPHENHYDRAMINE [Concomitant]
     Active Substance: DIPHENHYDRAMINE
  3. EPINEPHRINE (EPIPEN) [Concomitant]
  4. GRANISETRON (KYTRIL) [Concomitant]
  5. SULFAMETHOXAZOLE-TRIMETHOPRIM (BACTRIM,SEPTRA) [Concomitant]
  6. METHOTREXATE [Suspect]
     Active Substance: METHOTREXATE
     Dates: start: 20150310
  7. BENZOLY PEROXIDE [Concomitant]
  8. LIDOCAINE-PRILOCAINE [Concomitant]
     Active Substance: LIDOCAINE\PRILOCAINE
  9. SCOPOLAMINE (TRANSDER-SCOP) [Concomitant]
  10. FAMOTIDINE. [Concomitant]
     Active Substance: FAMOTIDINE
  11. ALBUTEROL. [Concomitant]
     Active Substance: ALBUTEROL
  12. LORAZEPAM (ATIVAN) [Concomitant]
  13. OXYCODONE (ROXICODONE) [Concomitant]
  14. DEXAMETHASONE. [Suspect]
     Active Substance: DEXAMETHASONE
     Dates: start: 20150330
  15. GLUTAMINE [Concomitant]
     Active Substance: GLUTAMINE

REACTIONS (7)
  - Hypercalcaemia [None]
  - Renal impairment [None]
  - Nephrotic syndrome [None]
  - Pulmonary oedema [None]
  - Cardiac arrest [None]
  - Encephalopathy [None]
  - Multi-organ failure [None]

NARRATIVE: CASE EVENT DATE: 20150406
